FAERS Safety Report 10208392 (Version 1)
Quarter: 2014Q2

REPORT INFORMATION
  Report Type: Report from Study
  Country: ZA (occurrence: ZA)
  Receive Date: 20140530
  Receipt Date: 20140530
  Transmission Date: 20141212
  Serious: Yes (Hospitalization, Other)
  Sender: FDA-Public Use
  Company Number: ZA-BRISTOL-MYERS SQUIBB COMPANY-20803656

PATIENT
  Age: 23 Year
  Sex: Female
  Weight: 114.4 kg

DRUGS (6)
  1. ATAZANAVIR [Suspect]
     Indication: HIV INFECTION
     Dates: start: 20120905, end: 20140327
  2. EFAVIRENZ [Suspect]
     Indication: HIV INFECTION
     Route: 048
     Dates: start: 20140327
  3. RITONAVIR [Suspect]
     Indication: HIV INFECTION
     Dates: start: 20120905, end: 20140327
  4. TRUVADA [Suspect]
     Indication: HIV INFECTION
     Dates: start: 20120905, end: 20140327
  5. LAMIVUDINE + ZIDOVUDINE [Suspect]
     Indication: HIV INFECTION
     Route: 048
     Dates: start: 20140327
  6. AMOXIL [Concomitant]

REACTIONS (3)
  - Benign hydatidiform mole [Recovered/Resolved]
  - Abortion induced [Unknown]
  - Viral load increased [Unknown]
